FAERS Safety Report 4764325-2 (Version None)
Quarter: 2005Q3

REPORT INFORMATION
  Report Type: 
  Country: None (occurrence: None)
  Receive Date: 20050906
  Receipt Date: 20050822
  Transmission Date: 20060218
  Serious: Yes (Hospitalization)
  Sender: FDA-Public Use
  Company Number: 2005118786

PATIENT
  Age: 70 Year
  Sex: Male
  Weight: 108.8633 kg

DRUGS (3)
  1. ZOLOFT [Suspect]
     Indication: DEPRESSION
     Dosage: 100 MG (100 MG, 1 IN 1 D)
  2. VIAGRA [Suspect]
     Indication: ERECTILE DYSFUNCTION
     Dosage: 50 MG AS NEEDED
     Dates: start: 20040504
  3. LITHUM (LITHIUM) [Suspect]
     Indication: BIPOLAR DISORDER
     Dates: start: 20020914, end: 20040101

REACTIONS (9)
  - ADVERSE EVENT [None]
  - BENIGN PROSTATIC HYPERPLASIA [None]
  - BLOOD CHOLESTEROL INCREASED [None]
  - CONDITION AGGRAVATED [None]
  - DEPRESSION [None]
  - DRUG INEFFECTIVE [None]
  - DYSPEPSIA [None]
  - ERECTILE DYSFUNCTION [None]
  - ONYCHOMYCOSIS [None]
